FAERS Safety Report 23622483 (Version 2)
Quarter: 2024Q2

REPORT INFORMATION
  Report Type: Spontaneous
  Country: US (occurrence: US)
  Receive Date: 20240312
  Receipt Date: 20240502
  Transmission Date: 20240716
  Serious: No
  Sender: FDA-Public Use
  Company Number: US-AstraZeneca-CH-00582942A

PATIENT
  Age: 54 Year
  Sex: Female
  Weight: 67 kg

DRUGS (1)
  1. STRENSIQ [Suspect]
     Active Substance: ASFOTASE ALFA
     Indication: Product used for unknown indication
     Dosage: 134 MILLIGRAM, TIW
     Route: 065
     Dates: start: 20240307

REACTIONS (1)
  - Injection site pain [Recovered/Resolved]

NARRATIVE: CASE EVENT DATE: 20240307
